FAERS Safety Report 10287463 (Version 2)
Quarter: 2014Q3

REPORT INFORMATION
  Report Type: Spontaneous
  Country: US (occurrence: US)
  Receive Date: 20140709
  Receipt Date: 20140710
  Transmission Date: 20150326
  Serious: Yes (Other)
  Sender: FDA-Public Use
  Company Number: US-VIIV HEALTHCARE LIMITED-A1080252A

PATIENT
  Age: 62 Year
  Sex: Male
  Weight: 97.5 kg

DRUGS (17)
  1. VALACYCLOVIR [Concomitant]
     Active Substance: VALACYCLOVIR HYDROCHLORIDE
  2. ANDROGEL [Concomitant]
     Active Substance: TESTOSTERONE
  3. EPZICOM [Concomitant]
     Active Substance: ABACAVIR SULFATE\LAMIVUDINE
     Indication: PRODUCT USED FOR UNKNOWN INDICATION
     Route: 065
     Dates: start: 2008
  4. AMBIEN [Concomitant]
     Active Substance: ZOLPIDEM TARTRATE
  5. COLESTIPOL [Concomitant]
     Active Substance: COLESTIPOL
  6. EZETIMIBE. [Concomitant]
     Active Substance: EZETIMIBE
  7. CLARINEX [Concomitant]
     Active Substance: DESLORATADINE
  8. NITROQUICK [Concomitant]
     Active Substance: NITROGLYCERIN
     Route: 060
  9. NEXIUM [Concomitant]
     Active Substance: ESOMEPRAZOLE MAGNESIUM
  10. TOPROL XL [Concomitant]
     Active Substance: METOPROLOL SUCCINATE
  11. TIVICAY [Suspect]
     Active Substance: DOLUTEGRAVIR SODIUM
     Indication: PRODUCT USED FOR UNKNOWN INDICATION
     Route: 065
     Dates: start: 20140407
  12. NEURONTIN [Concomitant]
     Active Substance: GABAPENTIN
  13. LOVAZA [Concomitant]
     Active Substance: OMEGA-3-ACID ETHYL ESTERS
  14. COUMADIN [Concomitant]
     Active Substance: WARFARIN SODIUM
  15. ZOFRAN [Concomitant]
     Active Substance: ONDANSETRON HYDROCHLORIDE
  16. ASPIRIN. [Concomitant]
     Active Substance: ASPIRIN
  17. EFAVIRENZ [Concomitant]
     Active Substance: EFAVIRENZ
     Dates: start: 2008, end: 20140404

REACTIONS (3)
  - Lipoatrophy [Not Recovered/Not Resolved]
  - Lipodystrophy acquired [Not Recovered/Not Resolved]
  - Weight decreased [Not Recovered/Not Resolved]
